FAERS Safety Report 16776717 (Version 2)
Quarter: 2019Q4

REPORT INFORMATION
  Report Type: Spontaneous
  Country: US (occurrence: US)
  Receive Date: 20190905
  Receipt Date: 20191002
  Transmission Date: 20200122
  Serious: No
  Sender: FDA-Public Use
  Company Number: US-SA-2019SA246860

PATIENT
  Age: 60 Year
  Sex: Female
  Weight: 104 kg

DRUGS (4)
  1. METOPROLOL SUCCINATE. [Concomitant]
     Active Substance: METOPROLOL SUCCINATE
     Indication: HYPERTENSION
     Dosage: 0.5 DF, QD
     Route: 048
     Dates: start: 2008
  2. PRALUENT [Suspect]
     Active Substance: ALIROCUMAB
     Indication: TYPE IIA HYPERLIPIDAEMIA
     Dosage: 75 MG, QOW
     Route: 058
     Dates: start: 201908, end: 201908
  3. HYDROCHLOROTHIAZIDE. [Concomitant]
     Active Substance: HYDROCHLOROTHIAZIDE
     Indication: HYPERTENSION
     Dosage: 25 MG, QD
     Route: 048
     Dates: start: 2008
  4. LATANOPROST. [Concomitant]
     Active Substance: LATANOPROST
     Indication: GLAUCOMA
     Dosage: 0.005 %, QD
     Route: 047
     Dates: start: 2010

REACTIONS (6)
  - Swelling [Not Recovered/Not Resolved]
  - Ocular hyperaemia [Unknown]
  - Pruritus [Unknown]
  - Urticaria [Recovered/Resolved]
  - Injection site pain [Recovered/Resolved]
  - Arthralgia [Not Recovered/Not Resolved]
